FAERS Safety Report 7404157 (Version 3)
Quarter: 2013Q3

REPORT INFORMATION
  Report Type: Spontaneous
  Country: US (occurrence: US)
  Receive Date: 20100528
  Receipt Date: 20130702
  Transmission Date: 20140515
  Serious: Yes (Hospitalization)
  Sender: FDA-Public Use
  Company Number: US-JNJFOC-20100508454

PATIENT
  Sex: Female
  Weight: 67.59 kg

DRUGS (11)
  1. REMICADE [Suspect]
     Indication: COLITIS ULCERATIVE
     Route: 042
     Dates: start: 20100603
  2. REMICADE [Suspect]
     Indication: COLITIS ULCERATIVE
     Route: 042
     Dates: start: 20081231, end: 20100305
  3. MESALAMINE [Concomitant]
     Dosage: STRENGTH PER CAPSULE: 400MGQUANTITY: 360 CAPSULES 6 CAP(S) BY MOUTH
     Route: 048
     Dates: start: 20130422
  4. CHONDROITIN SODIUM SULFATE W/GLUCOSAMINE HCL [Concomitant]
     Route: 048
  5. MESALAMINE [Concomitant]
     Indication: COLITIS ULCERATIVE
     Route: 042
  6. OMEGA-3 FATTY ACIDS [Concomitant]
     Route: 048
  7. SIMVASTATIN [Concomitant]
     Route: 048
  8. TYLENOL CODEINE [Concomitant]
     Dosage: DOSE: 300-30MGDOSAGE: 1 OR 2 TABLETS QUANTITY: 10
     Route: 048
     Dates: start: 20110127
  9. AMLODIPINE/BENAZEPRIL [Concomitant]
     Dosage: DOSE: 10-20MG
     Route: 048
  10. IMURAN [Concomitant]
     Dosage: QUANTITY:60??REFILLS: 5
     Route: 048
     Dates: start: 20121214
  11. CACIT VITAMINE D3 [Concomitant]
     Dosage: DOSE: 600MG (1500MG)??UNITS: 200
     Route: 048

REACTIONS (3)
  - Cellulitis [Recovered/Resolved]
  - Sepsis [Recovered/Resolved]
  - Corneal disorder [Unknown]
